FAERS Safety Report 12496498 (Version 1)
Quarter: 2016Q2

REPORT INFORMATION
  Report Type: Spontaneous
  Country: FR (occurrence: FR)
  Receive Date: 20160624
  Receipt Date: 20160624
  Transmission Date: 20160815
  Serious: Yes (Other)
  Sender: FDA-Public Use
  Company Number: FR-GLAXOSMITHKLINE-FR2016GSK088805

PATIENT
  Age: 67 Year
  Sex: Female

DRUGS (11)
  1. ZELITREX [Suspect]
     Active Substance: VALACYCLOVIR HYDROCHLORIDE
     Indication: SKIN GRAFT
     Dosage: 500 MG, BID
     Route: 048
     Dates: start: 20160413
  2. NEORAL [Suspect]
     Active Substance: CYCLOSPORINE
     Indication: SKIN GRAFT
     Dosage: UNK
     Route: 048
     Dates: start: 20160424
  3. TRIFLUCAN [Suspect]
     Active Substance: FLUCONAZOLE
     Indication: SKIN GRAFT
     Dosage: 400 MG, 1D
     Route: 048
     Dates: start: 20160420
  4. FLUDARABINE PHOSPHATE. [Suspect]
     Active Substance: FLUDARABINE PHOSPHATE
     Indication: SKIN GRAFT
     Dosage: UNK
     Route: 048
     Dates: start: 20160413
  5. ENDOXAN [Suspect]
     Active Substance: CYCLOPHOSPHAMIDE
     Indication: SKIN GRAFT
     Dosage: 2900 MG, 1D
     Route: 042
     Dates: start: 20160422, end: 20160423
  6. INEXIUM [Suspect]
     Active Substance: ESOMEPRAZOLE
     Indication: PRODUCT USED FOR UNKNOWN INDICATION
     Route: 048
  7. CLAMOXYL [Suspect]
     Active Substance: AMOXICILLIN\CLAVULANIC ACID
     Indication: SKIN GRAFT
     Dosage: 500 MG, BID
     Route: 048
     Dates: start: 20160510
  8. ARACYTINE [Concomitant]
     Active Substance: CYTARABINE
     Dosage: UNK
     Dates: start: 201512
  9. MYCOPHENOLATE MOFETIL. [Suspect]
     Active Substance: MYCOPHENOLATE MOFETIL
     Indication: SKIN GRAFT
     Dosage: 45 MG/KG, TID
     Route: 048
     Dates: start: 20160424
  10. THIOTEPA. [Suspect]
     Active Substance: THIOTEPA
     Indication: SKIN GRAFT
     Dosage: 100 MG/KG, 1D
     Route: 042
     Dates: start: 20160413, end: 20160417
  11. BACTRIM [Suspect]
     Active Substance: SULFAMETHOXAZOLE\TRIMETHOPRIM
     Indication: SKIN GRAFT
     Dosage: UNK
     Route: 048
     Dates: start: 201604

REACTIONS (6)
  - Visual field defect [Recovered/Resolved]
  - Pyrexia [Recovered/Resolved]
  - Rash [Recovered/Resolved]
  - Retinal haemorrhage [Recovered/Resolved]
  - Granulomatous dermatitis [Recovered/Resolved]
  - Pruritus [Recovered/Resolved]

NARRATIVE: CASE EVENT DATE: 20160510
